FAERS Safety Report 7079246-2 (Version None)
Quarter: 2010Q4

REPORT INFORMATION
  Report Type: 
  Country: None (occurrence: None)
  Receive Date: 20101102
  Receipt Date: 20101027
  Transmission Date: 20110411
  Serious: Yes (Other)
  Sender: FDA-Public Use
  Company Number: US-SANOFI-AVENTIS-2010SA060183

PATIENT
  Age: 86 Year
  Sex: Female
  Weight: 90.72 kg

DRUGS (3)
  1. OPTICLICK [Suspect]
     Indication: TYPE 2 DIABETES MELLITUS
     Dates: start: 20070101
  2. LANTUS [Suspect]
     Indication: TYPE 2 DIABETES MELLITUS
     Dosage: 35 UNITS IN THE AM AND 15 UNITS IN THE PM
     Route: 058
     Dates: start: 20070101, end: 20101001
  3. LANTUS [Suspect]
     Dosage: 30 UNITS IN THE AM AND 10 UNITS IN THE PM
     Route: 058
     Dates: start: 20101001

REACTIONS (4)
  - BLOOD GLUCOSE DECREASED [None]
  - DISORIENTATION [None]
  - HYPERHIDROSIS [None]
  - PRODUCT QUALITY ISSUE [None]
